FAERS Safety Report 9707702 (Version 1)
Quarter: 2013Q2

REPORT INFORMATION
  Report Type: Spontaneous
  Country: GB (occurrence: None)
  Receive Date: 20130523
  Receipt Date: 20130523
  Transmission Date: 20140414
  Serious: Yes (Other)
  Sender: FDA-Public Use
  Company Number: E2B_00000848

PATIENT
  Age: 68 Year
  Sex: Male
  Weight: 104 kg

DRUGS (4)
  1. SIMVASTATIN [Suspect]
     Indication: HYPERLIPIDAEMIA
     Route: 048
     Dates: start: 201301, end: 20130314
  2. BISOPROLOL [Concomitant]
  3. ACETYLSALICYLIC ACID (ASPIRIN) [Concomitant]
  4. CANDESARTAN [Concomitant]

REACTIONS (5)
  - Suicidal ideation [None]
  - Nightmare [None]
  - Toothache [None]
  - Musculoskeletal pain [None]
  - Musculoskeletal pain [None]
